FAERS Safety Report 7995294-X (Version None)
Quarter: 2011Q4

REPORT INFORMATION
  Report Type: 
  Country: None (occurrence: None)
  Receive Date: 20111220
  Receipt Date: 20111205
  Transmission Date: 20120403
  Serious: Yes (Hospitalization)
  Sender: FDA-Public Use
  Company Number: TR-WATSON-2011-21511

PATIENT
  Age: 30 Year
  Sex: Male

DRUGS (3)
  1. LAMOTRIGINE [Suspect]
     Indication: EPILEPSY
     Dosage: 25 MG, ALTERNATE DAYS
  2. VALPROATE SODIUM [Suspect]
     Indication: EPILEPSY
     Dosage: 25 MG, ALTERNATE DAYS
  3. VALPROATE SODIUM [Suspect]
     Dosage: 40 MG/KG, DAILY
     Route: 042

REACTIONS (1)
  - PSYCHOTIC DISORDER [None]
